FAERS Safety Report 4298928-9 (Version None)
Quarter: 2004Q1

REPORT INFORMATION
  Report Type: 
  Country: None (occurrence: None)
  Receive Date: 20040217
  Receipt Date: 20040209
  Transmission Date: 20041129
  Serious: Yes (Other)
  Sender: FDA-Public Use
  Company Number: FRWYE555204FEB04

PATIENT
  Age: 40 Year
  Sex: Female

DRUGS (2)
  1. EFFEXOR XR [Suspect]
     Indication: DEPRESSION
     Dosage: 112.5 MG DAILY TO 150 MG DAILY, ORAL; 37.5 MG 2X PER 1 DAY, ORAL
     Route: 048
     Dates: start: 19990101, end: 20030101
  2. EFFEXOR XR [Suspect]
     Indication: DEPRESSION
     Dosage: 112.5 MG DAILY TO 150 MG DAILY, ORAL; 37.5 MG 2X PER 1 DAY, ORAL
     Route: 048
     Dates: start: 20030101

REACTIONS (3)
  - DEPRESSION [None]
  - DRUG DEPENDENCE [None]
  - DRUG WITHDRAWAL SYNDROME [None]
